FAERS Safety Report 9928610 (Version 1)
Quarter: 2014Q1

REPORT INFORMATION
  Report Type: Spontaneous
  Country: JP (occurrence: JP)
  Receive Date: 20140227
  Receipt Date: 20140227
  Transmission Date: 20141002
  Serious: Yes (Other)
  Sender: FDA-Public Use
  Company Number: JP-PFIZER INC-2014054315

PATIENT
  Age: 80 Year
  Sex: Male

DRUGS (1)
  1. NORVASC OD [Suspect]
     Dosage: 5 MG, 1X/DAY
     Route: 048

REACTIONS (3)
  - Blood pressure increased [Unknown]
  - Heart rate increased [Unknown]
  - Chest discomfort [Unknown]
